FAERS Safety Report 6045532-8 (Version None)
Quarter: 2009Q1

REPORT INFORMATION
  Report Type: 
  Country: None (occurrence: None)
  Receive Date: 20090121
  Receipt Date: 20090120
  Transmission Date: 20090719
  Serious: Yes (Other)
  Sender: FDA-Public Use
  Company Number: B0551334A

PATIENT
  Age: 60 Year
  Sex: Male

DRUGS (5)
  1. ZANTAC [Suspect]
     Indication: PREMEDICATION
     Dosage: 50MG PER DAY
     Route: 042
     Dates: start: 20081217, end: 20081217
  2. SEROTONE [Suspect]
     Indication: PREMEDICATION
     Dosage: 10MG PER DAY
     Route: 042
     Dates: start: 20081217, end: 20081217
  3. DECADRON [Concomitant]
     Route: 042
     Dates: start: 20081217
  4. SODIUM CHLORIDE [Concomitant]
     Route: 042
     Dates: start: 20081217
  5. VEEN F [Concomitant]
     Dates: start: 20081217

REACTIONS (8)
  - ANAPHYLACTIC SHOCK [None]
  - BLOOD PRESSURE DECREASED [None]
  - COLD SWEAT [None]
  - DYSPNOEA [None]
  - FEELING ABNORMAL [None]
  - MALAISE [None]
  - NAUSEA [None]
  - OXYGEN SATURATION DECREASED [None]
